FAERS Safety Report 7525155-1 (Version None)
Quarter: 2011Q2

REPORT INFORMATION
  Report Type: 
  Country: None (occurrence: None)
  Receive Date: 20110602
  Receipt Date: 20110602
  Transmission Date: 20111010
  Serious: Yes (Hospitalization)
  Sender: FDA-Public Use
  Company Number: None

PATIENT
  Age: 66 Year
  Sex: Male
  Weight: 94 kg

DRUGS (1)
  1. PIOGLITAZONE [Suspect]
     Indication: DIABETES MELLITUS
     Dosage: 15 MG EVERY DAY PO
     Route: 048
     Dates: start: 20110412, end: 20110502

REACTIONS (4)
  - RETCHING [None]
  - VOMITING [None]
  - MALLORY-WEISS SYNDROME [None]
  - NAUSEA [None]
